FAERS Safety Report 7457592-8 (Version None)
Quarter: 2011Q2

REPORT INFORMATION
  Report Type: 
  Country: None (occurrence: None)
  Receive Date: 20110426
  Receipt Date: 20110419
  Transmission Date: 20111010
  Serious: No
  Sender: FDA-Public Use
  Company Number: 2011SP016847

PATIENT
  Age: 84 Year
  Sex: Female
  Weight: 64.4108 kg

DRUGS (8)
  1. FISH OIL [Concomitant]
  2. MIRALAX [Suspect]
     Indication: CONSTIPATION
     Dosage: 17 GM, TID, PO, 17 GM BID, PO, 17 GM QD, PO
     Route: 048
  3. MIRALAX [Suspect]
     Indication: CONSTIPATION
     Dosage: 17 GM, TID, PO, 17 GM BID, PO, 17 GM QD, PO
     Route: 048
     Dates: start: 20110301
  4. CENTRUM SILVER [Concomitant]
  5. CALCIUM [Concomitant]
  6. LEVOTHYROXINE SODIUM [Concomitant]
  7. ACIPHEX [Concomitant]
  8. NIACIN [Concomitant]

REACTIONS (1)
  - FACE OEDEMA [None]
